FAERS Safety Report 21573819 (Version 2)
Quarter: 2022Q4

REPORT INFORMATION
  Report Type: Other
  Country: None (occurrence: US)
  Receive Date: 20221109
  Receipt Date: 20221110
  Transmission Date: 20230113
  Serious: Yes (Other)
  Sender: FDA-Public Use
  Company Number: US-B.Braun Medical Inc.-2134710

PATIENT
  Age: 36 Year
  Sex: Female

DRUGS (2)
  1. CEFEPIME HYDROCHLORIDE AND DEXTROSE [Suspect]
     Active Substance: CEFEPIME HYDROCHLORIDE
  2. MEROPENEM [Suspect]
     Active Substance: MEROPENEM

REACTIONS (1)
  - Drug ineffective [Unknown]
